FAERS Safety Report 8004518-4 (Version None)
Quarter: 2011Q4

REPORT INFORMATION
  Report Type: 
  Country: None (occurrence: None)
  Receive Date: 20111221
  Receipt Date: 20111221
  Transmission Date: 20120403
  Serious: Yes (Hospitalization)
  Sender: FDA-Public Use
  Company Number: None

PATIENT
  Age: 61 Year
  Sex: Male
  Weight: 106.3 kg

DRUGS (9)
  1. GABAPENTIN [Concomitant]
  2. LORAZEPAM [Concomitant]
  3. LISINOPRIL [Concomitant]
  4. SALINE NS [Concomitant]
  5. PREDNISONE [Suspect]
     Dosage: 20 MG DAILY W/TAPER PO RECENT
     Route: 048
  6. ASPIRIN [Suspect]
     Dosage: 81 MG DAILY PO RECENT
     Route: 048
  7. TRAMADOL HCL [Concomitant]
  8. MELOXICAM [Suspect]
     Dosage: 50 MG DAILY PO RECENT
     Route: 048
  9. TIZANIDINE HCL [Concomitant]

REACTIONS (2)
  - LOWER GASTROINTESTINAL HAEMORRHAGE [None]
  - DIVERTICULITIS [None]
